FAERS Safety Report 11497173 (Version 5)
Quarter: 2015Q3

REPORT INFORMATION
  Report Type: Spontaneous
  Country: US (occurrence: US)
  Receive Date: 20150911
  Receipt Date: 20150930
  Transmission Date: 20151125
  Serious: Yes (Other)
  Sender: FDA-Public Use
  Company Number: US-JNJFOC-20150904741

PATIENT
  Age: 86 Year
  Sex: Female
  Weight: 69.4 kg

DRUGS (10)
  1. XARELTO [Suspect]
     Active Substance: RIVAROXABAN
     Indication: CEREBROVASCULAR ACCIDENT PROPHYLAXIS
     Route: 048
     Dates: start: 201307
  2. SYNTHROID [Concomitant]
     Active Substance: LEVOTHYROXINE SODIUM
     Route: 065
  3. ALPHA LIPOIC ACID [Concomitant]
     Active Substance: .ALPHA.-LIPOIC ACID
     Route: 065
  4. XARELTO [Suspect]
     Active Substance: RIVAROXABAN
     Indication: ATRIAL FIBRILLATION
     Route: 048
     Dates: start: 201307
  5. XARELTO [Suspect]
     Active Substance: RIVAROXABAN
     Indication: THROMBOSIS
     Route: 048
     Dates: start: 201307
  6. IBANDRONATE [Concomitant]
     Active Substance: IBANDRONATE SODIUM
     Route: 065
  7. COLAZAL [Concomitant]
     Active Substance: BALSALAZIDE DISODIUM
     Route: 065
  8. GLUCOSAMINE / CHONDROITIN [Concomitant]
     Route: 065
  9. CALCIUM [Concomitant]
     Active Substance: CALCIUM
     Route: 065
  10. ALDACTONE [Concomitant]
     Active Substance: SPIRONOLACTONE
     Dosage: OCCASIONALLY
     Route: 065

REACTIONS (3)
  - Retinal haemorrhage [Unknown]
  - Concussion [Unknown]
  - Head injury [Unknown]

NARRATIVE: CASE EVENT DATE: 2015
